FAERS Safety Report 14102152 (Version 2)
Quarter: 2017Q4

REPORT INFORMATION
  Report Type: Report from Study
  Country: DE (occurrence: DE)
  Receive Date: 20171018
  Receipt Date: 20171025
  Transmission Date: 20180321
  Serious: Yes (Hospitalization)
  Sender: FDA-Public Use
  Company Number: DE-AMGEN-DEUCT2017115255

PATIENT
  Age: 76 Year
  Sex: Male
  Weight: 65 kg

DRUGS (9)
  1. PRAMIPEXOLE. [Concomitant]
     Active Substance: PRAMIPEXOLE
     Indication: RESTLESS LEGS SYNDROME
     Dosage: 0.25 UNK, QD
     Route: 048
  2. 5-FU [Suspect]
     Active Substance: FLUOROURACIL
     Indication: COLORECTAL CANCER METASTATIC
     Dosage: 2400 MG/M2, UNK
     Route: 042
     Dates: start: 20170524
  3. OXALIPLATIN. [Concomitant]
     Active Substance: OXALIPLATIN
     Indication: COLORECTAL CANCER METASTATIC
     Dosage: 85 MG/M2, UNK
     Route: 042
     Dates: start: 20170524
  4. VALSARTAN. [Concomitant]
     Active Substance: VALSARTAN
     Indication: HYPERTENSION
     Dosage: 160 MG, QD
     Route: 048
  5. RESTEX [Concomitant]
     Active Substance: BENSERAZIDE
     Indication: RESTLESS LEGS SYNDROME
     Dosage: 100/25, QD
     Route: 048
  6. PANITUMUMAB [Suspect]
     Active Substance: PANITUMUMAB
     Indication: COLORECTAL CANCER METASTATIC
     Dosage: 400 MG, UNK
     Route: 042
     Dates: start: 20170524
  7. FOLINIC ACID [Concomitant]
     Active Substance: LEUCOVORIN
     Indication: COLORECTAL CANCER METASTATIC
     Dosage: 400 MG/M2, UNK
     Route: 042
     Dates: start: 20170524
  8. PANTOZOL [Concomitant]
     Active Substance: PANTOPRAZOLE SODIUM
     Indication: PROPHYLAXIS
     Dosage: 40 UNK, QD
     Route: 048
     Dates: start: 20170524
  9. DOXYCYCLINE. [Concomitant]
     Active Substance: DOXYCYCLINE
     Indication: PROPHYLAXIS
     Dosage: 100 UNK, QD
     Route: 048
     Dates: start: 20170524

REACTIONS (2)
  - Syncope [Recovered/Resolved]
  - Diarrhoea [Recovered/Resolved]

NARRATIVE: CASE EVENT DATE: 20170728
